FAERS Safety Report 11807022 (Version 1)
Quarter: 2015Q4

REPORT INFORMATION
  Report Type: Spontaneous
  Country: US (occurrence: US)
  Receive Date: 20151207
  Receipt Date: 20151207
  Transmission Date: 20160305
  Serious: No
  Sender: FDA-Public Use
  Company Number: US-ENDO PHARMACEUTICALS INC.-2015-002548

PATIENT
  Age: 52 Year
  Sex: Male
  Weight: 85.81 kg

DRUGS (2)
  1. TESTIM [Suspect]
     Active Substance: TESTOSTERONE
     Route: 065
     Dates: start: 2015
  2. TESTIM [Suspect]
     Active Substance: TESTOSTERONE
     Indication: BLOOD TESTOSTERONE DECREASED
     Dosage: APPLY CONTENTS OF 1 TUBE DAILY
     Route: 062
     Dates: start: 20150824, end: 2015

REACTIONS (3)
  - Nausea [Recovered/Resolved]
  - Bronchospasm [Recovered/Resolved]
  - Product odour abnormal [Unknown]

NARRATIVE: CASE EVENT DATE: 20150824
